FAERS Safety Report 24668380 (Version 6)
Quarter: 2024Q4

REPORT INFORMATION
  Report Type: Report from Study
  Country: DE (occurrence: DE)
  Receive Date: 20241127
  Receipt Date: 20241226
  Transmission Date: 20250114
  Serious: Yes (Life-Threatening, Hospitalization, Other)
  Sender: AUROBINDO
  Company Number: DE-SANDOZ-SDZ2024DE095044

PATIENT
  Age: 8 Year
  Sex: Male

DRUGS (7)
  1. DEFERASIROX [Suspect]
     Active Substance: DEFERASIROX
     Indication: Chelation therapy
     Dosage: 250 MILLIGRAM, ONCE A DAY
     Route: 065
     Dates: start: 201704, end: 2023
  2. DEFERASIROX [Suspect]
     Active Substance: DEFERASIROX
     Indication: Serum ferritin increased
     Dosage: 360 MILLIGRAM, ONCE A DAY
     Route: 065
     Dates: end: 2023
  3. DEFERASIROX [Suspect]
     Active Substance: DEFERASIROX
     Dosage: UNK
     Route: 065
     Dates: start: 201704, end: 2023
  4. DIMENHYDRINATE [Concomitant]
     Active Substance: DIMENHYDRINATE
     Indication: Gastrointestinal infection
     Dosage: UNK
     Route: 048
  5. DIMENHYDRINATE [Concomitant]
     Active Substance: DIMENHYDRINATE
     Indication: Pyrexia
  6. DIMENHYDRINATE [Concomitant]
     Active Substance: DIMENHYDRINATE
     Indication: Vomiting
  7. DIMENHYDRINATE [Concomitant]
     Active Substance: DIMENHYDRINATE
     Indication: Serum ferritin increased

REACTIONS (27)
  - Acute hepatic failure [Recovered/Resolved]
  - Toxicity to various agents [Unknown]
  - Thrombocytopenia [Recovered/Resolved]
  - Hypothermia [Recovered/Resolved]
  - Rhinovirus infection [Unknown]
  - Condition aggravated [Unknown]
  - Gastrointestinal infection [Recovered/Resolved]
  - Pyrexia [Recovered/Resolved]
  - Vomiting [Recovered/Resolved]
  - General physical health deterioration [Recovered/Resolved]
  - Somnolence [Recovered/Resolved]
  - Hypertonia [Recovered/Resolved]
  - Muscle spasms [Recovered/Resolved]
  - Hyperammonaemia [Recovered/Resolved]
  - Cyanosis [Recovered/Resolved]
  - Lactic acidosis [Recovered/Resolved]
  - Depressed level of consciousness [Recovered/Resolved]
  - Metabolic acidosis [Recovered/Resolved]
  - Hypoglycaemia [Recovered/Resolved]
  - Alanine aminotransferase increased [Recovered/Resolved]
  - Aspartate aminotransferase increased [Recovered/Resolved]
  - Blood alkaline phosphatase increased [Recovered/Resolved]
  - Blood uric acid increased [Recovered/Resolved]
  - International normalised ratio increased [Recovered/Resolved]
  - Carnitine decreased [Recovered/Resolved]
  - Blood calcium increased [Recovered/Resolved]
  - Areflexia [Recovered/Resolved]

NARRATIVE: CASE EVENT DATE: 20231001
